FAERS Safety Report 9101065 (Version 1)
Quarter: 2013Q1

REPORT INFORMATION
  Report Type: Spontaneous
  Country: NO (occurrence: NO)
  Receive Date: 20130215
  Receipt Date: 20130215
  Transmission Date: 20140127
  Serious: Yes (Hospitalization)
  Sender: FDA-Public Use
  Company Number: NO-BAXTER-2013BAX005247

PATIENT
  Sex: Male

DRUGS (1)
  1. KIOVIG [Suspect]
     Indication: IMMUNODEFICIENCY COMMON VARIABLE
     Route: 042
     Dates: start: 20121120, end: 20121120

REACTIONS (5)
  - Back pain [Unknown]
  - Dyspnoea [Unknown]
  - Hyperventilation [Unknown]
  - Malaise [Unknown]
  - Vomiting [Unknown]
